FAERS Safety Report 24170153 (Version 3)
Quarter: 2024Q4

REPORT INFORMATION
  Report Type: Report from Study
  Country: TR (occurrence: TR)
  Receive Date: 20240803
  Receipt Date: 20241001
  Transmission Date: 20250115
  Serious: Yes (Death, Hospitalization, Other)
  Sender: ABBVIE
  Company Number: TR-ABBVIE-5860801

PATIENT
  Age: 78 Year
  Sex: Female

DRUGS (2)
  1. CARBIDOPA\LEVODOPA [Suspect]
     Active Substance: CARBIDOPA\LEVODOPA
     Indication: Parkinson^s disease
     Dosage: MORNING DOSE (ML): 8.00 CONTINUOUS DOSE (ML): 5.50 EXTRA DOSE (ML): 1.500
     Route: 050
     Dates: start: 20230925
  2. CARBIDOPA\LEVODOPA [Suspect]
     Active Substance: CARBIDOPA\LEVODOPA

REACTIONS (11)
  - Cardiac arrest [Fatal]
  - Parkinson^s disease [Not Recovered/Not Resolved]
  - Feeding disorder [Not Recovered/Not Resolved]
  - Disseminated intravascular coagulation [Unknown]
  - Device issue [Recovered/Resolved]
  - Dysphagia [Not Recovered/Not Resolved]
  - Urinary tract infection [Unknown]
  - Atrial fibrillation [Unknown]
  - Device dislocation [Recovered/Resolved]
  - Oxygen saturation decreased [Recovered/Resolved]
  - Oesophageal haemorrhage [Unknown]

NARRATIVE: CASE EVENT DATE: 20240429
